FAERS Safety Report 15781673 (Version 1)
Quarter: 2018Q4

REPORT INFORMATION
  Report Type: Spontaneous
  Country: GB (occurrence: GB)
  Receive Date: 20181230
  Receipt Date: 20181230
  Transmission Date: 20190205
  Serious: Yes (Death, Life-Threatening)
  Sender: FDA-Public Use
  Company Number: None

PATIENT
  Age: 57 Year
  Sex: Female

DRUGS (1)
  1. YONDELIS [Suspect]
     Active Substance: TRABECTEDIN
     Indication: NEOPLASM MALIGNANT
     Dates: start: 20160609, end: 20160701

REACTIONS (4)
  - Product quality issue [None]
  - Product expiration date issue [None]
  - Product origin unknown [None]
  - Product lot number issue [None]

NARRATIVE: CASE EVENT DATE: 20160609
